FAERS Safety Report 4866308-0 (Version None)
Quarter: 2005Q4

REPORT INFORMATION
  Report Type: 
  Country: None (occurrence: None)
  Receive Date: 20051221
  Receipt Date: 20051206
  Transmission Date: 20060501
  Serious: Yes (Death)
  Sender: FDA-Public Use
  Company Number: 217290

PATIENT
  Age: 62 Year
  Sex: Male
  Weight: 68.5 kg

DRUGS (7)
  1. AVASTIN [Suspect]
     Indication: COLORECTAL CANCER METASTATIC
     Dosage: 5 MG/KG Q2W INTRAVENOUS
     Route: 042
     Dates: start: 20050124, end: 20050822
  2. OXALIPLATIN (OXALIPLATIN) [Concomitant]
  3. FLUOROURACIL [Concomitant]
  4. LEUCOVORIN CALCIUM [Concomitant]
  5. VITAMIN C (ASCORBIC ACID) [Concomitant]
  6. VITAMIN D (CHOLECALCIFEROL) [Concomitant]
  7. COENZYME Q-10 (UNIDECARENONE) [Concomitant]

REACTIONS (6)
  - BODY TEMPERATURE DECREASED [None]
  - FALL [None]
  - LOSS OF CONSCIOUSNESS [None]
  - PHARMACEUTICAL PRODUCT COMPLAINT [None]
  - SUDDEN CARDIAC DEATH [None]
  - VENTRICULAR FIBRILLATION [None]
